FAERS Safety Report 14496853 (Version 8)
Quarter: 2018Q3

REPORT INFORMATION
  Report Type: Spontaneous
  Country: US (occurrence: US)
  Receive Date: 20180207
  Receipt Date: 20180910
  Transmission Date: 20181010
  Serious: Yes (Hospitalization, Other)
  Sender: FDA-Public Use
  Company Number: US-PFIZER INC-2017283906

PATIENT
  Age: 77 Year
  Sex: Female
  Weight: 113.4 kg

DRUGS (14)
  1. SYMBICORT [Concomitant]
     Active Substance: BUDESONIDE\FORMOTEROL FUMARATE DIHYDRATE
     Indication: DYSPNOEA
     Dosage: 1 DF, DAILY (1 PUFF DAILY)
  2. FISH OIL [Concomitant]
     Active Substance: FISH OIL
     Dosage: UNK
  3. XELJANZ [Suspect]
     Active Substance: TOFACITINIB CITRATE
     Indication: RHEUMATOID ARTHRITIS
     Dosage: 5 MG, TWICE DAILY
  4. SYNTHROID [Concomitant]
     Active Substance: LEVOTHYROXINE SODIUM
     Indication: THYROIDECTOMY
     Dosage: 0.125 MG, 1X/DAY
  5. OMEPRAZOLE. [Concomitant]
     Active Substance: OMEPRAZOLE
     Dosage: 40 MG, UNK
  6. XELJANZ [Suspect]
     Active Substance: TOFACITINIB CITRATE
     Indication: CHRONIC KIDNEY DISEASE
     Dosage: 5 MG, ONCE DAILY
     Route: 048
     Dates: start: 201706
  7. LOSARTAN. [Concomitant]
     Active Substance: LOSARTAN
     Dosage: 50 MG, 1X/DAY
  8. GLIPIZIDE. [Concomitant]
     Active Substance: GLIPIZIDE
     Dosage: 10 MG, 2X/DAY
  9. VITAMIN D [Concomitant]
     Active Substance: CHOLECALCIFEROL
     Dosage: UNK
  10. ASPIRIN (E.C.) [Concomitant]
     Active Substance: ASPIRIN
     Dosage: UNK
  11. XELJANZ [Suspect]
     Active Substance: TOFACITINIB CITRATE
     Indication: PAIN IN EXTREMITY
  12. SPIRIVA [Concomitant]
     Active Substance: TIOTROPIUM BROMIDE MONOHYDRATE
     Indication: DYSPNOEA
     Dosage: 1 DF, DAILY (1 PUFF DAILY)
  13. IRON [Concomitant]
     Active Substance: IRON
     Dosage: UNK (DATE STARTED: 6 MOS)
  14. CHLORTHALIDONE. [Concomitant]
     Active Substance: CHLORTHALIDONE
     Dosage: UNK

REACTIONS (6)
  - Neuropathy peripheral [Unknown]
  - Movement disorder [Not Recovered/Not Resolved]
  - Pneumonia [Recovering/Resolving]
  - Influenza [Recovering/Resolving]
  - Choking [Unknown]
  - Cough [Unknown]

NARRATIVE: CASE EVENT DATE: 201712
